FAERS Safety Report 7766893-5 (Version None)
Quarter: 2011Q3

REPORT INFORMATION
  Report Type: 
  Country: None (occurrence: None)
  Receive Date: 20110922
  Receipt Date: 20110920
  Transmission Date: 20111222
  Serious: No
  Sender: FDA-Public Use
  Company Number: US-PFIZER INC-2011223535

PATIENT
  Sex: Male

DRUGS (4)
  1. ALAVERT [Suspect]
     Indication: NASOPHARYNGITIS
     Dosage: UNKNOWN DOSE EVERY FOUR HOURS
     Route: 048
     Dates: start: 20110912, end: 20110920
  2. ALAVERT [Suspect]
     Indication: RHINORRHOEA
  3. ALAVERT [Suspect]
     Indication: COUGH
  4. LUNESTA [Concomitant]
     Indication: SLEEP DISORDER
     Dosage: UNK

REACTIONS (1)
  - INSOMNIA [None]
